FAERS Safety Report 8158461-0 (Version None)
Quarter: 2012Q1

REPORT INFORMATION
  Report Type: 
  Country: None (occurrence: None)
  Receive Date: 20120223
  Receipt Date: 20120216
  Transmission Date: 20120608
  Serious: No
  Sender: FDA-Public Use
  Company Number: US-PFIZER INC-2012043469

PATIENT
  Age: 48 Year
  Sex: Male

DRUGS (3)
  1. VIAGRA [Suspect]
     Dosage: UNK
  2. KLONOPIN [Suspect]
     Indication: PANIC ATTACK
  3. VICODIN [Suspect]

REACTIONS (4)
  - INJURY [None]
  - STRESS [None]
  - SLEEP DISORDER [None]
  - ROAD TRAFFIC ACCIDENT [None]
